FAERS Safety Report 4359754-5 (Version None)
Quarter: 2004Q2

REPORT INFORMATION
  Report Type: 
  Country: None (occurrence: None)
  Receive Date: 20040512
  Receipt Date: 20040429
  Transmission Date: 20050107
  Serious: Yes (Other)
  Sender: FDA-Public Use
  Company Number: 2004031272

PATIENT
  Sex: Female

DRUGS (3)
  1. ATARAX [Suspect]
     Indication: ILL-DEFINED DISORDER
     Dosage: INTRAMUSCULAR
     Route: 030
  2. TRAMADOL HCL [Suspect]
     Indication: ILL-DEFINED DISORDER
  3. MORPHINE [Suspect]
     Indication: ILL-DEFINED DISORDER

REACTIONS (2)
  - DRUG ABUSER [None]
  - DRUG EXPOSURE DURING PREGNANCY [None]
